FAERS Safety Report 6782309-X (Version None)
Quarter: 2010Q2

REPORT INFORMATION
  Report Type: 
  Country: None (occurrence: None)
  Receive Date: 20100621
  Receipt Date: 20100609
  Transmission Date: 20101027
  Serious: Yes (Death, Hospitalization, Other)
  Sender: FDA-Public Use
  Company Number: US-PFIZER INC-2010047790

PATIENT
  Sex: Male

DRUGS (3)
  1. EMCYT [Suspect]
     Indication: PROSTATE CANCER METASTATIC
     Dosage: 280 MG
  2. TAXOTERE [Suspect]
     Indication: PROSTATE CANCER METASTATIC
     Dosage: 65 MG/M2, ALTERNATE DAY
  3. PREDNISONE [Suspect]
     Indication: PROSTATE CANCER METASTATIC
     Dosage: UNK

REACTIONS (3)
  - CARDIOPULMONARY FAILURE [None]
  - PNEUMONIA [None]
  - URINARY TRACT INFECTION FUNGAL [None]
